FAERS Safety Report 21701332 (Version 3)
Quarter: 2022Q4

REPORT INFORMATION
  Report Type: Report from Study
  Country: CA (occurrence: CA)
  Receive Date: 20221208
  Receipt Date: 20221220
  Transmission Date: 20230113
  Serious: Yes (Other)
  Sender: FDA-Public Use
  Company Number: CA-HLS-202202184

PATIENT
  Age: 22 Year
  Sex: Female

DRUGS (7)
  1. CLOZARIL [Suspect]
     Active Substance: CLOZAPINE
     Indication: Schizophrenia
     Dosage: 100 MG AM AND 500 MG AT BEDTIME
     Route: 065
     Dates: start: 202203
  2. CLOZARIL [Suspect]
     Active Substance: CLOZAPINE
     Indication: Schizophrenia
     Dosage: (100MG EVERY MORNING AND 500MG AT BEDTIME)
     Route: 048
     Dates: start: 20220427
  3. CLONAZEPAM [Concomitant]
     Active Substance: CLONAZEPAM
     Indication: Product used for unknown indication
     Dosage: 2.5 MG (PATIENT IS BEING TAPERED GRADUALLY)
     Route: 065
  4. METFORMIN [Concomitant]
     Active Substance: METFORMIN HYDROCHLORIDE
     Indication: Product used for unknown indication
     Dosage: 500 MG/DAY
     Route: 065
  5. ZOLOFT [Concomitant]
     Active Substance: SERTRALINE HYDROCHLORIDE
     Indication: Depression
     Dosage: 200 MG/DAY
     Route: 048
     Dates: start: 202203
  6. ZOLOFT [Concomitant]
     Active Substance: SERTRALINE HYDROCHLORIDE
     Indication: Intrusive thoughts
     Dosage: 200 MG/DAY
     Route: 048
     Dates: start: 202203
  7. ATENOLOL [Concomitant]
     Active Substance: ATENOLOL
     Indication: Tachycardia
     Dosage: 25 MG
     Route: 048
     Dates: start: 202211

REACTIONS (7)
  - Hallucination, auditory [Not Recovered/Not Resolved]
  - Intrusive thoughts [Unknown]
  - Sedation [Unknown]
  - Seizure [Unknown]
  - Salivary hypersecretion [Unknown]
  - Tachycardia [Not Recovered/Not Resolved]
  - Weight increased [Unknown]

NARRATIVE: CASE EVENT DATE: 20220901
